FAERS Safety Report 15765727 (Version 1)
Quarter: 2018Q4

REPORT INFORMATION
  Report Type: Spontaneous
  Country: US (occurrence: US)
  Receive Date: 20181227
  Receipt Date: 20181227
  Transmission Date: 20190205
  Serious: Yes (Other)
  Sender: FDA-Public Use
  Company Number: US-SA-2018SA076407

PATIENT
  Age: 43 Year
  Sex: Female

DRUGS (3)
  1. TAXOTERE [Suspect]
     Active Substance: DOCETAXEL
     Indication: BREAST CANCER
     Dosage: 70 MG, Q3W
     Route: 042
     Dates: start: 20041019, end: 20041019
  2. TAXOTERE [Suspect]
     Active Substance: DOCETAXEL
     Dosage: 70 MG, Q3W
     Route: 042
     Dates: start: 20050112, end: 20050112
  3. LEUKERAN [Concomitant]
     Active Substance: CHLORAMBUCIL
     Dosage: UNK UNK, UNK
     Route: 065

REACTIONS (6)
  - Alopecia [Not Recovered/Not Resolved]
  - Impaired quality of life [Unknown]
  - Anxiety [Unknown]
  - Emotional distress [Unknown]
  - Pain [Unknown]
  - Psychological trauma [Unknown]

NARRATIVE: CASE EVENT DATE: 20041110
